FAERS Safety Report 16973171 (Version 10)
Quarter: 2021Q4

REPORT INFORMATION
  Report Type: Report from Study
  Country: JP (occurrence: JP)
  Receive Date: 20191030
  Receipt Date: 20211109
  Transmission Date: 20220304
  Serious: Yes (Life-Threatening, Hospitalization, Other)
  Sender: FDA-Public Use
  Company Number: JP-ASTELLAS-2019JP019925

PATIENT
  Age: 11 Year
  Sex: Female
  Weight: 28 kg

DRUGS (10)
  1. GILTERITINIB [Suspect]
     Active Substance: GILTERITINIB
     Indication: Acute myeloid leukaemia recurrent
     Route: 048
     Dates: start: 20190902, end: 20191022
  2. GILTERITINIB [Suspect]
     Active Substance: GILTERITINIB
     Route: 048
     Dates: start: 20191023, end: 20191201
  3. GILTERITINIB [Suspect]
     Active Substance: GILTERITINIB
     Route: 048
     Dates: start: 20191202, end: 20200104
  4. CYTARABINE [Concomitant]
     Active Substance: CYTARABINE
     Indication: Acute myeloid leukaemia
     Dosage: 80 MG/DAY, UNKNOWN FREQ.
     Route: 065
  5. FAMOTIDINE [Concomitant]
     Active Substance: FAMOTIDINE
     Indication: Prophylaxis
     Route: 048
     Dates: start: 20180525
  6. FLUCONAZOLE [Concomitant]
     Active Substance: FLUCONAZOLE
     Indication: Infection prophylaxis
     Route: 048
     Dates: start: 20190610
  7. DESMOPRESSIN ACETATE [Concomitant]
     Active Substance: DESMOPRESSIN ACETATE
     Indication: Diabetes insipidus
     Route: 048
     Dates: start: 20190727, end: 20191027
  8. PREDNISOLONE [Concomitant]
     Active Substance: PREDNISOLONE
     Indication: Juvenile idiopathic arthritis
     Route: 048
     Dates: start: 20190804
  9. FEBUXOSTAT [Concomitant]
     Active Substance: FEBUXOSTAT
     Indication: Tumour lysis syndrome
     Route: 048
     Dates: start: 20191010, end: 20191027
  10. HEPARIN [Concomitant]
     Active Substance: HEPARIN SODIUM
     Indication: Disseminated intravascular coagulation
     Dosage: UNK UNK, UNKNOWN FREQ.
     Route: 065
     Dates: start: 20191028

REACTIONS (5)
  - Bacteraemia [Not Recovered/Not Resolved]
  - Tumour lysis syndrome [Recovered/Resolved]
  - Disseminated intravascular coagulation [Recovered/Resolved]
  - Hepatic function abnormal [Unknown]
  - Off label use [Unknown]

NARRATIVE: CASE EVENT DATE: 20190902
